FAERS Safety Report 14323081 (Version 1)
Quarter: 2017Q4

REPORT INFORMATION
  Report Type: Spontaneous
  Country: US (occurrence: US)
  Receive Date: 20171226
  Receipt Date: 20171226
  Transmission Date: 20180321
  Serious: Yes (Other)
  Sender: FDA-Public Use
  Company Number: US-UCBSA-2017050390

PATIENT
  Age: 8 Year
  Sex: Male

DRUGS (1)
  1. METHYLPHENIDATE HYDROCHLORIDE. [Suspect]
     Active Substance: METHYLPHENIDATE HYDROCHLORIDE
     Indication: ATTENTION DEFICIT/HYPERACTIVITY DISORDER
     Dosage: 10 MG, ONCE DAILY (QD)(ONE CAPSULE PER DAY)
     Route: 048
     Dates: start: 201711, end: 201712

REACTIONS (1)
  - Benign neoplasm of eye [Not Recovered/Not Resolved]

NARRATIVE: CASE EVENT DATE: 201712
